FAERS Safety Report 5736369-5 (Version None)
Quarter: 2008Q2

REPORT INFORMATION
  Report Type: 
  Country: None (occurrence: None)
  Receive Date: 20080509
  Receipt Date: 20080509
  Transmission Date: 20081010
  Serious: No
  Sender: FDA-Public Use
  Company Number: None

PATIENT
  Age: 37 Year
  Sex: Female
  Weight: 58.9676 kg

DRUGS (2)
  1. CAPZASIN NO MESS APPLICATOR  .15%  CHATTEM [Suspect]
     Indication: ARTHRALGIA
     Dosage: APPLY, MASSAGE TIL RUBBED IN 3-4 TIMES DAILY TRANSDERMAL
     Route: 062
     Dates: start: 20060501, end: 20080419
  2. CAPZASIN NO MESS APPLICATOR  .15%  CHATTEM [Suspect]
     Indication: MYALGIA
     Dosage: APPLY, MASSAGE TIL RUBBED IN 3-4 TIMES DAILY TRANSDERMAL
     Route: 062
     Dates: start: 20060501, end: 20080419

REACTIONS (11)
  - APPLICATION SITE BURN [None]
  - APPLICATION SITE DISCOLOURATION [None]
  - APPLICATION SITE DRYNESS [None]
  - APPLICATION SITE EXFOLIATION [None]
  - APPLICATION SITE PAIN [None]
  - APPLICATION SITE REACTION [None]
  - APPLICATION SITE SCAR [None]
  - APPLICATION SITE VESICLES [None]
  - FEAR [None]
  - NO REACTION ON PREVIOUS EXPOSURE TO DRUG [None]
  - SKIN DISORDER [None]
